FAERS Safety Report 5271463-7 (Version None)
Quarter: 2007Q1

REPORT INFORMATION
  Report Type: 
  Country: None (occurrence: None)
  Receive Date: 20070321
  Receipt Date: 20070309
  Transmission Date: 20070707
  Serious: Yes (Other)
  Sender: FDA-Public Use
  Company Number: US-SHR-US-2006-034882

PATIENT
  Age: 52 Year
  Sex: Female

DRUGS (3)
  1. MAGNEVIST [Suspect]
     Indication: ANGIOGRAM
     Dosage: 40 ML, 1 DOSE
     Dates: start: 20021001, end: 20021001
  2. MAGNEVIST [Suspect]
     Dosage: 40 ML, 1 DOSE
     Dates: start: 20030601, end: 20030601
  3. MAGNEVIST [Suspect]
     Dosage: 40 ML, 1 DOSE
     Dates: start: 20040101, end: 20040101

REACTIONS (12)
  - BURNING SENSATION [None]
  - CELLULITIS [None]
  - GAIT DISTURBANCE [None]
  - GOUT [None]
  - LOCALISED INFECTION [None]
  - MUSCULAR WEAKNESS [None]
  - NEPHROGENIC FIBROSING DERMOPATHY [None]
  - PAIN [None]
  - PAIN IN EXTREMITY [None]
  - SKIN DISCOLOURATION [None]
  - SKIN INDURATION [None]
  - VENOUS STASIS [None]
